FAERS Safety Report 5292140-2 (Version None)
Quarter: 2007Q2

REPORT INFORMATION
  Report Type: 
  Country: None (occurrence: None)
  Receive Date: 20070410
  Receipt Date: 20070402
  Transmission Date: 20071010
  Serious: Yes (Hospitalization)
  Sender: FDA-Public Use
  Company Number: KW-GLAXOSMITHKLINE-B0078203A

PATIENT
  Age: 5 Month
  Sex: Male

DRUGS (5)
  1. CEFUROXIME [Suspect]
     Indication: LOBAR PNEUMONIA
     Dosage: 100MGK PER DAY
     Route: 042
  2. CLOXACILLIN SODIUM [Concomitant]
     Indication: PNEUMONIA
     Route: 042
  3. AMINOPHYLLINE [Concomitant]
     Indication: ASTHMA
     Route: 042
  4. HYDROCORTISONE [Concomitant]
     Indication: ASTHMA
  5. SALBUTAMOL [Concomitant]
     Indication: ASTHMA
     Route: 055

REACTIONS (5)
  - ABDOMINAL DISTENSION [None]
  - DIARRHOEA [None]
  - ILEUS PARALYTIC [None]
  - METABOLIC ACIDOSIS [None]
  - TACHYPNOEA [None]
